FAERS Safety Report 26059513 (Version 1)
Quarter: 2025Q4

REPORT INFORMATION
  Report Type: Spontaneous
  Country: US (occurrence: US)
  Receive Date: 20251118
  Receipt Date: 20251118
  Transmission Date: 20260118
  Serious: Yes (Hospitalization)
  Sender: ELI LILLY AND COMPANY
  Company Number: US-ELI_LILLY_AND_COMPANY-US202511014958

PATIENT

DRUGS (2)
  1. MOUNJARO [Suspect]
     Active Substance: TIRZEPATIDE
     Indication: Diabetes mellitus inadequate control
     Dosage: 2.5 MG, UNKNOWN
     Route: 065
  2. MOUNJARO [Suspect]
     Active Substance: TIRZEPATIDE
     Indication: Diabetes mellitus inadequate control
     Dosage: 2.5 MG, UNKNOWN
     Route: 065

REACTIONS (10)
  - Large intestinal obstruction [Unknown]
  - Fluid intake reduced [Unknown]
  - Small intestinal obstruction [Unknown]
  - Sepsis [Unknown]
  - Renal disorder [Unknown]
  - Starvation [Unknown]
  - Ketoacidosis [Unknown]
  - Dehydration [Unknown]
  - Vomiting [Unknown]
  - Impaired gastric emptying [Unknown]
